FAERS Safety Report 8921540 (Version 2)
Quarter: 2012Q4

REPORT INFORMATION
  Report Type: 
  Country: JP (occurrence: JP)
  Receive Date: 20121122
  Receipt Date: 20121226
  Transmission Date: 20130627
  Serious: Yes (Other)
  Sender: FDA-Public Use
  Company Number: PHHY2012JP105496

PATIENT

DRUGS (3)
  1. DIOVAN [Suspect]
     Indication: HYPERTENSION
     Route: 048
  2. AMARYL [Concomitant]
     Dosage: UNK
     Route: 048
  3. JANUVIA [Concomitant]
     Dosage: UNK
     Route: 048

REACTIONS (3)
  - Gait disturbance [Recovering/Resolving]
  - Myalgia [Unknown]
  - Quality of life decreased [Unknown]
